FAERS Safety Report 6595582-8 (Version None)
Quarter: 2010Q1

REPORT INFORMATION
  Report Type: 
  Country: None (occurrence: None)
  Receive Date: 20100216
  Receipt Date: 20100203
  Transmission Date: 20100710
  Serious: Yes (Other)
  Sender: FDA-Public Use
  Company Number: 238283K09USA

PATIENT
  Age: 46 Year
  Sex: Female
  Weight: 59 kg

DRUGS (8)
  1. REBIF [Suspect]
     Indication: MULTIPLE SCLEROSIS
     Dosage: 44 MCG, 3 IN 1 WEEKS,  SUBCUTANEOUS, 22 MCG, 3 IN 1 WEEKS, SUBCUTANEOUS
     Route: 058
     Dates: start: 20080429, end: 20090701
  2. REBIF [Suspect]
     Indication: MULTIPLE SCLEROSIS
     Dosage: 44 MCG, 3 IN 1 WEEKS,  SUBCUTANEOUS, 22 MCG, 3 IN 1 WEEKS, SUBCUTANEOUS
     Route: 058
     Dates: start: 20090701
  3. ZOCOR [Concomitant]
  4. LISINOPRIL AND HYDROCHLOROTHIAZIDE (PRINZIDE) [Concomitant]
  5. TOPROL-XL [Concomitant]
  6. BACLOFEN [Concomitant]
  7. PERCOCET [Concomitant]
  8. XANAX [Concomitant]

REACTIONS (3)
  - HEREDITARY HAEMOCHROMATOSIS [None]
  - INFLUENZA LIKE ILLNESS [None]
  - MENOPAUSE [None]
